FAERS Safety Report 20722196 (Version 1)
Quarter: 2022Q2

REPORT INFORMATION
  Report Type: Spontaneous
  Country: GB (occurrence: GB)
  Receive Date: 20220418
  Receipt Date: 20220418
  Transmission Date: 20220721
  Serious: Yes (Disabling, Other)
  Sender: FDA-Public Use
  Company Number: DE-BAUSCH-BL-2022-009117

PATIENT
  Age: 19 Year
  Sex: Female

DRUGS (3)
  1. HYDROCORTISONE [Suspect]
     Active Substance: HYDROCORTISONE
     Indication: Eczema
     Route: 061
  2. TACROLIMUS [Suspect]
     Active Substance: TACROLIMUS
     Indication: Eczema
     Route: 065
  3. MOMETASONE FUROATE [Suspect]
     Active Substance: MOMETASONE FUROATE
     Indication: Eczema
     Route: 065

REACTIONS (7)
  - Topical steroid withdrawal reaction [Not Recovered/Not Resolved]
  - Swelling [Not Recovered/Not Resolved]
  - Lymphadenopathy [Not Recovered/Not Resolved]
  - Fatigue [Not Recovered/Not Resolved]
  - Depression [Not Recovered/Not Resolved]
  - Body temperature increased [Not Recovered/Not Resolved]
  - Insomnia [Not Recovered/Not Resolved]

NARRATIVE: CASE EVENT DATE: 20191110
